FAERS Safety Report 16976578 (Version 3)
Quarter: 2020Q1

REPORT INFORMATION
  Report Type: Spontaneous
  Country: VE (occurrence: VE)
  Receive Date: 20191030
  Receipt Date: 20200326
  Transmission Date: 20200409
  Serious: Yes (Other)
  Sender: FDA-Public Use
  Company Number: NVSC2019VE000650

PATIENT
  Age: 67 Year
  Sex: Female
  Weight: 48 kg

DRUGS (5)
  1. GLIVEC [Suspect]
     Active Substance: IMATINIB MESYLATE
     Dosage: 200 MG (2X100)
     Route: 065
  2. GLIVEC [Suspect]
     Active Substance: IMATINIB MESYLATE
     Dosage: UNK, QD
     Route: 048
  3. MELOXICAM. [Concomitant]
     Active Substance: MELOXICAM
     Indication: MYALGIA
     Dosage: 50 UG, QD
     Route: 048
     Dates: start: 201910
  4. EUTHYROX [Concomitant]
     Active Substance: LEVOTHYROXINE SODIUM
     Indication: HYPOTHYROIDISM
     Dosage: 50 UG, QD
     Route: 048
  5. GLIVEC [Suspect]
     Active Substance: IMATINIB MESYLATE
     Indication: CHRONIC MYELOID LEUKAEMIA
     Dosage: 400 MG, QD
     Route: 048

REACTIONS (12)
  - Pruritus [Unknown]
  - Swelling of eyelid [Unknown]
  - Swelling face [Recovering/Resolving]
  - Vision blurred [Recovering/Resolving]
  - Vaginal haemorrhage [Recovering/Resolving]
  - Oedema peripheral [Recovering/Resolving]
  - Ecchymosis [Unknown]
  - Endometrial adenocarcinoma [Unknown]
  - Second primary malignancy [Unknown]
  - Hydrometra [Unknown]
  - Gait disturbance [Recovering/Resolving]
  - Rash [Unknown]

NARRATIVE: CASE EVENT DATE: 20191010
